FAERS Safety Report 9307913 (Version 1)
Quarter: 2013Q2

REPORT INFORMATION
  Report Type: Report from Study
  Country: MX (occurrence: MX)
  Receive Date: 20130524
  Receipt Date: 20130524
  Transmission Date: 20140414
  Serious: Yes (Other)
  Sender: FDA-Public Use
  Company Number: PHHY2013MX051716

PATIENT
  Age: 68 Year
  Sex: Male

DRUGS (4)
  1. TEGRETOL [Suspect]
     Indication: AFFECTIVE DISORDER
     Dosage: 2 DF, DAILY
     Route: 048
  2. TEGRETOL [Suspect]
     Indication: OFF LABEL USE
  3. CLONAZEPAM [Concomitant]
     Dosage: 0.5 DF, QD (0.5 DF, DAILY AT NIGHT)
     Dates: start: 201302
  4. RISPERIDONE [Concomitant]
     Dosage: 1 DF, QD (1 DF, 1 DF, DAILY AT NIGHT)
     Dates: start: 201302

REACTIONS (2)
  - Schizophrenia, paranoid type [Not Recovered/Not Resolved]
  - Social avoidant behaviour [Not Recovered/Not Resolved]
